FAERS Safety Report 7354841-1 (Version None)
Quarter: 2011Q1

REPORT INFORMATION
  Report Type: 
  Country: None (occurrence: None)
  Receive Date: 20110311
  Receipt Date: 20110311
  Transmission Date: 20110831
  Serious: No
  Sender: FDA-Public Use
  Company Number: None

PATIENT
  Sex: Female
  Weight: 95.2554 kg

DRUGS (1)
  1. LEVAQUIN [Suspect]
     Indication: BRONCHITIS
     Dosage: 1 TABLET ONCE DAILY
     Dates: start: 20110222

REACTIONS (5)
  - EXTRASYSTOLES [None]
  - BLOOD PRESSURE INCREASED [None]
  - PALPITATIONS [None]
  - MALAISE [None]
  - FEELING ABNORMAL [None]
